FAERS Safety Report 21919781 (Version 4)
Quarter: 2023Q1

REPORT INFORMATION
  Report Type: Spontaneous
  Country: US (occurrence: US)
  Receive Date: 20230127
  Receipt Date: 20230313
  Transmission Date: 20230418
  Serious: No
  Sender: FDA-Public Use
  Company Number: US-ALKERMES INC.-ALK-2023-000339

PATIENT
  Age: 53 Year
  Sex: Female
  Weight: 61.224 kg

DRUGS (7)
  1. VIVITROL [Suspect]
     Active Substance: NALTREXONE
     Indication: Alcohol abuse
     Dosage: 380 MILLIGRAM, QMO
     Route: 030
     Dates: start: 20230111, end: 20230117
  2. PROPRANOLOL [Concomitant]
     Active Substance: PROPRANOLOL HYDROCHLORIDE
     Indication: Bipolar disorder
     Dosage: 10 MILLIGRAM, TID
     Route: 048
     Dates: start: 20210517
  3. PAXIL [Concomitant]
     Active Substance: PAROXETINE HYDROCHLORIDE
     Indication: Bipolar disorder
     Dosage: 50 MILLIGRAM, QD
     Route: 065
     Dates: start: 20210517
  4. SEROQUEL [Concomitant]
     Active Substance: QUETIAPINE FUMARATE
     Indication: Alcohol abuse
     Dosage: 100 MILLIGRAM, QD
     Route: 065
     Dates: start: 20210517
  5. SEROQUEL [Concomitant]
     Active Substance: QUETIAPINE FUMARATE
     Dosage: 400 MILLIGRAM, QHS
     Route: 065
     Dates: start: 20210517
  6. HYDROXYZINE [Concomitant]
     Active Substance: HYDROXYZINE HYDROCHLORIDE
     Indication: Alcohol abuse
     Dosage: 50 MILLIGRAM, BID
     Route: 048
     Dates: start: 20210517
  7. KLONIDIN APL [Concomitant]
     Indication: Generalised anxiety disorder
     Dosage: 1 MILLIGRAM, PRN
     Route: 048
     Dates: start: 20210517

REACTIONS (4)
  - Oropharyngeal pain [Recovered/Resolved]
  - Pyrexia [Recovered/Resolved]
  - Chills [Recovered/Resolved]
  - Influenza like illness [Recovered/Resolved]

NARRATIVE: CASE EVENT DATE: 20230117
